FAERS Safety Report 9771957 (Version 1)
Quarter: 2013Q4

REPORT INFORMATION
  Report Type: Spontaneous
  Country: BR (occurrence: BR)
  Receive Date: 20131219
  Receipt Date: 20131219
  Transmission Date: 20140711
  Serious: Yes (Other)
  Sender: FDA-Public Use
  Company Number: BR-JNJFOC-20131209529

PATIENT
  Age: 53 Year
  Sex: 0
  Weight: 86.4 kg

DRUGS (1)
  1. REMICADE [Suspect]
     Indication: COLITIS
     Route: 042
     Dates: start: 20130213

REACTIONS (4)
  - Burning sensation [Recovered/Resolved]
  - Infusion related reaction [Recovered/Resolved]
  - Sensory disturbance [Recovered/Resolved]
  - Erythema [Recovered/Resolved]
